FAERS Safety Report 8817409 (Version 4)
Quarter: 2012Q4

REPORT INFORMATION
  Report Type: 
  Country: CH (occurrence: CH)
  Receive Date: 20121004
  Receipt Date: 20121120
  Transmission Date: 20130627
  Serious: No
  Sender: FDA-Public Use
  Company Number: CH-B.I. PHARMACEUTICALS,INC./RIDGEFIELD-2012-AP-00811SI

PATIENT
  Age: 40 Year
  Sex: Male

DRUGS (4)
  1. PRADAXA [Suspect]
     Indication: PULMONARY HYPERTENSION
     Dosage: 150 mg
     Route: 048
     Dates: start: 20120207, end: 20120426
  2. PRADAXA [Suspect]
     Dosage: 220 mg
     Route: 048
     Dates: start: 201201, end: 201202
  3. ALDACTONE [Concomitant]
     Indication: PULMONARY HYPERTENSION
     Dosage: 50 mg
     Route: 048
     Dates: start: 2011
  4. VOLIBRIS [Concomitant]
     Indication: PULMONARY HYPERTENSION
     Dosage: 10 mg
     Route: 048
     Dates: start: 201101

REACTIONS (2)
  - Phlebitis superficial [Recovered/Resolved]
  - Venous thrombosis [Recovered/Resolved]
